FAERS Safety Report 13554444 (Version 16)
Quarter: 2020Q3

REPORT INFORMATION
  Report Type: Report from Study
  Country: ES (occurrence: ES)
  Receive Date: 20170517
  Receipt Date: 20200706
  Transmission Date: 20201102
  Serious: Yes (Death, Life-Threatening, Hospitalization)
  Sender: FDA-Public Use
  Company Number: ES-ROCHE-1934858

PATIENT
  Age: 84 Year
  Sex: Male
  Weight: 75 kg

DRUGS (27)
  1. NITRO?DUR [Concomitant]
     Active Substance: NITROGLYCERIN
     Indication: MYOCARDIAL ISCHAEMIA
     Route: 062
  2. NOLOTIL [METAMIZOLE MAGNESIUM] [Concomitant]
     Active Substance: METAMIZOLE MAGNESIUM
     Route: 048
  3. ENTRESTO [Concomitant]
     Active Substance: SACUBITRIL\VALSARTAN
     Indication: MYOCARDIAL ISCHAEMIA
     Route: 048
     Dates: start: 20170509
  4. BISOPROLOL [Concomitant]
     Active Substance: BISOPROLOL
     Route: 048
     Dates: start: 20170421
  5. HEMOVAS [Concomitant]
     Route: 048
  6. ATORVASTATINE [ATORVASTATIN] [Concomitant]
     Active Substance: ATORVASTATIN
     Indication: DYSLIPIDAEMIA
     Route: 048
     Dates: end: 20170509
  7. LYRICA [Concomitant]
     Active Substance: PREGABALIN
     Indication: SCIATICA
     Route: 048
  8. ALLOPURINOL. [Concomitant]
     Active Substance: ALLOPURINOL
     Indication: ACUTE PULMONARY OEDEMA
     Route: 048
  9. AMLODIPINE [Concomitant]
     Active Substance: AMLODIPINE BESYLATE
     Indication: MYOCARDIAL ISCHAEMIA
     Route: 048
     Dates: start: 20170509
  10. OMEPRAZOL [OMEPRAZOLE] [Concomitant]
     Active Substance: OMEPRAZOLE
     Indication: GASTROINTESTINAL DISORDER PROPHYLAXIS
     Route: 048
  11. ATORVASTATINE [ATORVASTATIN] [Concomitant]
     Active Substance: ATORVASTATIN
     Route: 048
     Dates: start: 20170509
  12. NOLOTIL [METAMIZOLE MAGNESIUM] [Concomitant]
     Active Substance: METAMIZOLE MAGNESIUM
     Indication: SCIATICA
     Route: 048
     Dates: start: 20170322
  13. ALDACTONE [Concomitant]
     Active Substance: SPIRONOLACTONE
     Indication: HYPERTENSION
     Route: 048
     Dates: start: 20170317, end: 20170327
  14. ALLOPURINOL. [Concomitant]
     Active Substance: ALLOPURINOL
     Route: 048
     Dates: start: 20170510, end: 20170512
  15. NITROGLYCERIN. [Concomitant]
     Active Substance: NITROGLYCERIN
     Indication: ACUTE PULMONARY OEDEMA
     Route: 042
     Dates: start: 20170510, end: 20170511
  16. BISOPROLOL [Concomitant]
     Active Substance: BISOPROLOL
     Indication: ACUTE CORONARY SYNDROME
     Route: 048
     Dates: start: 20170509
  17. HEMOVAS [Concomitant]
     Indication: INTERMITTENT CLAUDICATION
     Route: 048
  18. RANEXA [Concomitant]
     Active Substance: RANOLAZINE
     Indication: ACUTE CORONARY SYNDROME
     Route: 047
     Dates: start: 20170421
  19. PARACETAMOL [Concomitant]
     Active Substance: ACETAMINOPHEN
     Indication: SCIATICA
     Route: 048
     Dates: start: 20170322
  20. NITROGLYCERIN. [Concomitant]
     Active Substance: NITROGLYCERIN
     Route: 060
     Dates: start: 20170418, end: 20170418
  21. BISOPROLOL [Concomitant]
     Active Substance: BISOPROLOL
     Indication: MYOCARDIAL ISCHAEMIA
     Route: 048
  22. SEGURIL [Concomitant]
     Active Substance: FUROSEMIDE
     Indication: HYPERTENSION
     Route: 048
  23. ATEZOLIZUMAB. [Suspect]
     Active Substance: ATEZOLIZUMAB
     Indication: TRANSITIONAL CELL CARCINOMA
     Dosage: THE MOST RECENT DOSE OF ATEZOLIZUMAB (LOT NUMBER: 1153697) WAS ADMINISTERED ON 09/MAY/2017, PRIOR T
     Route: 042
     Dates: start: 20170327
  24. ADIRO [Concomitant]
     Active Substance: ASPIRIN
     Indication: MYOCARDIAL ISCHAEMIA
     Route: 048
  25. RANEXA [Concomitant]
     Active Substance: RANOLAZINE
     Indication: MYOCARDIAL ISCHAEMIA
     Route: 047
     Dates: start: 20170509
  26. NITROGLYCERIN. [Concomitant]
     Active Substance: NITROGLYCERIN
     Indication: MYOCARDIAL ISCHAEMIA
     Route: 062
     Dates: start: 20170509
  27. NITROGLYCERIN. [Concomitant]
     Active Substance: NITROGLYCERIN
     Indication: ACUTE CORONARY SYNDROME
     Route: 042
     Dates: start: 20170525, end: 20170529

REACTIONS (2)
  - Acute coronary syndrome [Fatal]
  - Acute pulmonary oedema [Recovered/Resolved]

NARRATIVE: CASE EVENT DATE: 20170418
